FAERS Safety Report 11144042 (Version 2)
Quarter: 2015Q3

REPORT INFORMATION
  Report Type: Spontaneous
  Country: JP (occurrence: JP)
  Receive Date: 20150528
  Receipt Date: 20150817
  Transmission Date: 20151125
  Serious: Yes (Death)
  Sender: FDA-Public Use
  Company Number: JP-TEVA-565477ISR

PATIENT
  Age: 62 Year
  Sex: Female
  Weight: 41 kg

DRUGS (7)
  1. FENTOS [Concomitant]
     Active Substance: FENTANYL
     Indication: CANCER PAIN
     Dosage: 6 MILLIGRAM DAILY;
     Route: 062
     Dates: start: 20140705, end: 20140811
  2. E-FEN BUCCAL [Suspect]
     Active Substance: FENTANYL CITRATE
     Indication: BREAKTHROUGH PAIN
     Dosage: 0-100 MICROGRAM
     Route: 002
     Dates: start: 20140707, end: 20140712
  3. FENTOS [Concomitant]
     Active Substance: FENTANYL
     Dosage: 8 MILLIGRAM DAILY;
     Route: 062
     Dates: start: 20140818, end: 20140901
  4. E-FEN BUCCAL [Suspect]
     Active Substance: FENTANYL CITRATE
     Route: 002
     Dates: start: 20140713, end: 20140817
  5. E-FEN BUCCAL [Suspect]
     Active Substance: FENTANYL CITRATE
     Dosage: 200-600 MICROGRAM
     Route: 002
     Dates: start: 20140818, end: 20140820
  6. FENTOS [Concomitant]
     Active Substance: FENTANYL
     Dosage: 7 MILLIGRAM DAILY;
     Route: 062
     Dates: start: 20140811, end: 20140817
  7. OXINORM [Concomitant]
     Active Substance: OXYCODONE HYDROCHLORIDE
     Indication: BREAKTHROUGH PAIN
     Route: 048
     Dates: start: 20140707, end: 20140712

REACTIONS (1)
  - Bladder cancer [Fatal]

NARRATIVE: CASE EVENT DATE: 20140901
